FAERS Safety Report 4742952-6 (Version None)
Quarter: 2005Q3

REPORT INFORMATION
  Report Type: 
  Country: None (occurrence: None)
  Receive Date: 20050811
  Receipt Date: 20030825
  Transmission Date: 20060218
  Serious: Yes (Hospitalization)
  Sender: FDA-Public Use
  Company Number: PHBS2003JP09041

PATIENT
  Age: 70 Year
  Sex: Male
  Weight: 46 kg

DRUGS (2)
  1. DIOVAN [Suspect]
     Indication: HYPERTENSION
     Dosage: 80 MG/DAY
     Route: 048
     Dates: start: 20030401, end: 20030709
  2. SAIKO-KA-RYUKOTSU-BOREI-TO [Suspect]
     Indication: HYPERTENSION
     Route: 048
     Dates: start: 20030401, end: 20030709

REACTIONS (11)
  - BRONCHIECTASIS [None]
  - BRONCHIOLITIS [None]
  - CHEST X-RAY ABNORMAL [None]
  - COMPUTERISED TOMOGRAM ABNORMAL [None]
  - DYSPNOEA [None]
  - INTERSTITIAL LUNG DISEASE [None]
  - LYMPHOCYTE COUNT INCREASED [None]
  - LYMPHOCYTE STIMULATION TEST POSITIVE [None]
  - MALAISE [None]
  - PNEUMONITIS [None]
  - WHITE BLOOD CELL COUNT INCREASED [None]
